FAERS Safety Report 10248594 (Version 1)
Quarter: 2014Q2

REPORT INFORMATION
  Report Type: Spontaneous
  Country: US (occurrence: US)
  Receive Date: 20140620
  Receipt Date: 20140620
  Transmission Date: 20141212
  Serious: Yes (Hospitalization)
  Sender: FDA-Public Use
  Company Number: US-AMGEN-USASP2014045755

PATIENT
  Age: 68 Year
  Sex: Female

DRUGS (1)
  1. ENBREL [Suspect]
     Indication: PSORIATIC ARTHROPATHY
     Dosage: 50 MG, QWK
     Route: 065

REACTIONS (6)
  - Diarrhoea [Recovered/Resolved]
  - Autoimmune disorder [Recovered/Resolved]
  - Dehydration [Recovered/Resolved]
  - Organ failure [Recovered/Resolved]
  - Lethargy [Recovered/Resolved]
  - Injection site haemorrhage [Recovered/Resolved]
